FAERS Safety Report 26108559 (Version 1)
Quarter: 2025Q4

REPORT INFORMATION
  Report Type: Spontaneous
  Country: US (occurrence: None)
  Receive Date: 20251201
  Receipt Date: 20251201
  Transmission Date: 20260118
  Serious: Yes (Hospitalization)
  Sender: FDA-CTU
  Company Number: None

PATIENT
  Sex: Male

DRUGS (11)
  1. REVLIMID [Suspect]
     Active Substance: LENALIDOMIDE
     Indication: Plasma cell myeloma
     Dosage: OTHER FREQUENCY : DAILY FOR 14 DAYS FOLLOWED BY A 7 DAY REST PERIOD;?
     Route: 048
     Dates: start: 20251105
  2. ACYCLOVIR [Concomitant]
     Active Substance: ACYCLOVIR
  3. ALLOPURINOL [Concomitant]
     Active Substance: ALLOPURINOL
  4. ASPIRIN TAB 325MG EC [Concomitant]
  5. B1 TAB 100MG [Concomitant]
  6. DARZALEX INJ FASPRO [Concomitant]
  7. DEXAMETHASONE [Concomitant]
     Active Substance: DEXAMETHASONE
  8. DULOXETINE CAP 60MG DR [Concomitant]
  9. FAMOTIDINE [Concomitant]
     Active Substance: FAMOTIDINE
  10. FERROUS SULF TAB 325MG [Concomitant]
  11. FOLIC ACID TAB 1MG [Concomitant]

REACTIONS (1)
  - Seizure [None]
